FAERS Safety Report 14340123 (Version 1)
Quarter: 2017Q4

REPORT INFORMATION
  Report Type: Spontaneous
  Country: DE (occurrence: DE)
  Receive Date: 20171231
  Receipt Date: 20171231
  Transmission Date: 20180321
  Serious: Yes (Hospitalization)
  Sender: FDA-Public Use
  Company Number: DE-TEVA-2017-DE-838456

PATIENT
  Age: 39 Year
  Sex: Female

DRUGS (1)
  1. DIAZEPAM-RATIOPHARM 10 MG / ML TROPFEN ZUM EINNEHMEN [Suspect]
     Active Substance: DIAZEPAM
     Route: 048
     Dates: start: 20171217

REACTIONS (6)
  - Confusional state [Not Recovered/Not Resolved]
  - Dizziness [Recovering/Resolving]
  - Asthenia [Not Recovered/Not Resolved]
  - Disorientation [Recovering/Resolving]
  - Slow response to stimuli [Recovering/Resolving]
  - Overdose [Unknown]

NARRATIVE: CASE EVENT DATE: 20171217
